FAERS Safety Report 25896191 (Version 1)
Quarter: 2025Q4

REPORT INFORMATION
  Report Type: Spontaneous
  Country: TR (occurrence: TR)
  Receive Date: 20251008
  Receipt Date: 20251008
  Transmission Date: 20260117
  Serious: Yes (Life-Threatening)
  Sender: OTSUKA
  Company Number: TR-MMM-Otsuka-KDP4YT80

PATIENT
  Age: 45 Year
  Sex: Female

DRUGS (4)
  1. ABILIFY [Suspect]
     Active Substance: ARIPIPRAZOLE
     Indication: Obsessive-compulsive disorder
     Dosage: 15 MG, QD
     Dates: end: 20250918
  2. FLUVOXAMINE MALEATE [Suspect]
     Active Substance: FLUVOXAMINE MALEATE
     Indication: Obsessive-compulsive disorder
     Dosage: 200 MG, QD
     Dates: start: 20250908, end: 20250920
  3. LITHIUM CARBONATE [Suspect]
     Active Substance: LITHIUM CARBONATE
     Indication: Obsessive-compulsive disorder
     Dosage: 600 MG, QD
     Dates: start: 20250911, end: 20250920
  4. N?RODOL [Concomitant]
     Indication: Obsessive-compulsive disorder
     Dosage: 5 GTT, QD (1/12 MILLILITRE)
     Dates: start: 20250917, end: 20250920

REACTIONS (1)
  - Hepatic enzyme increased [Recovering/Resolving]

NARRATIVE: CASE EVENT DATE: 20250918
